FAERS Safety Report 7953665-1 (Version None)
Quarter: 2011Q4

REPORT INFORMATION
  Report Type: 
  Country: None (occurrence: None)
  Receive Date: 20111129
  Receipt Date: 20111104
  Transmission Date: 20120403
  Serious: Yes (Other)
  Sender: FDA-Public Use
  Company Number: FR-SEPTODONT-201100196

PATIENT
  Sex: Male

DRUGS (6)
  1. SEPTANEST (ARTICAINE HCL AND EPINEPHRINE) 1:200,000 [Suspect]
     Indication: LOCAL ANAESTHESIA
     Dosage: DENTAL CARTRIDGE
     Dates: start: 20110601
  2. XYLONOR PELLETS (LIDOCAINE, CETRIMIDE) [Suspect]
     Indication: LOCAL ANAESTHESIA
     Dosage: DENTAL
     Dates: start: 20110601
  3. INDAPAMIDE [Concomitant]
  4. PERINDOPRIL ERBUMINE [Concomitant]
  5. KARDEGIC (ASPIRIN DL-LYSINE) [Concomitant]
  6. PRAXILENE (NAFTIDROFURYL) [Concomitant]

REACTIONS (2)
  - GINGIVAL DISORDER [None]
  - NECROSIS [None]
